FAERS Safety Report 17416000 (Version 17)
Quarter: 2020Q4

REPORT INFORMATION
  Report Type: Report from Study
  Country: BR (occurrence: BR)
  Receive Date: 20200213
  Receipt Date: 20201112
  Transmission Date: 20210113
  Serious: Yes (Death, Life-Threatening, Hospitalization)
  Sender: FDA-Public Use
  Company Number: BR-EISAI MEDICAL RESEARCH-EC-2020-070030

PATIENT
  Age: 74 Year
  Sex: Female
  Weight: 72.2 kg

DRUGS (11)
  1. CARDIZEM [Concomitant]
     Active Substance: DILTIAZEM HYDROCHLORIDE
     Dates: start: 20000101, end: 20200303
  2. MORPHINE [Concomitant]
     Active Substance: MORPHINE
     Dates: start: 20191213, end: 20200303
  3. MINERAL OIL. [Concomitant]
     Active Substance: MINERAL OIL
     Dates: start: 20181113, end: 20200303
  4. LEVOTHYROXINE. [Concomitant]
     Active Substance: LEVOTHYROXINE
     Dates: start: 20000101, end: 20200303
  5. LENVATINIB [Suspect]
     Active Substance: LENVATINIB
     Indication: ENDOMETRIAL CANCER
     Route: 048
     Dates: start: 20200113, end: 20200204
  6. SIMVASTATIN. [Concomitant]
     Active Substance: SIMVASTATIN
     Dates: start: 20000101, end: 20200303
  7. DIPYRONE [Concomitant]
     Active Substance: DIPYRONE
     Dates: start: 20000101, end: 20200303
  8. MIRTAZAPINE. [Concomitant]
     Active Substance: MIRTAZAPINE
     Dates: start: 20191214, end: 20200303
  9. OMEPRAZOLE. [Concomitant]
     Active Substance: OMEPRAZOLE
     Dates: start: 20000101, end: 20200303
  10. CLONAZEPAM. [Concomitant]
     Active Substance: CLONAZEPAM
     Dates: start: 20000101, end: 20200303
  11. PEMBROLIZUMAB. [Suspect]
     Active Substance: PEMBROLIZUMAB
     Indication: ENDOMETRIAL CANCER
     Route: 041
     Dates: start: 20200113, end: 20200113

REACTIONS (1)
  - Autoimmune nephritis [Recovered/Resolved]

NARRATIVE: CASE EVENT DATE: 20200204
